FAERS Safety Report 4603647-2 (Version None)
Quarter: 2005Q1

REPORT INFORMATION
  Report Type: 
  Country: None (occurrence: None)
  Receive Date: 20050308
  Receipt Date: 20050221
  Transmission Date: 20050727
  Serious: Yes (Disabling)
  Sender: FDA-Public Use
  Company Number: CIP05000313

PATIENT
  Age: 66 Year
  Sex: Male

DRUGS (9)
  1. DANTRIUM [Suspect]
     Indication: MUSCLE SPASMS
     Dosage: 25 MG, EVENING, ORAL
     Route: 048
     Dates: start: 20041014, end: 20050106
  2. ASPIRIN [Concomitant]
  3. AMLODIPINE BESYLATE [Concomitant]
  4. FAMOTIDINE [Concomitant]
  5. MARZULENE S (LEVOGLUTAMIDE, SODIUM GUALENATE) [Concomitant]
  6. SELBEX (TEPRENONE) [Concomitant]
  7. TAKEPRON (LANSOPRAZOLE) [Concomitant]
  8. PASETOCIN (AMOXICILLIN) [Concomitant]
  9. CLARITHROMYCIN [Concomitant]

REACTIONS (5)
  - ERYTHEMA MULTIFORME [None]
  - GASTRIC ULCER [None]
  - HELICOBACTER INFECTION [None]
  - HUMAN HERPESVIRUS 6 INFECTION [None]
  - OEDEMA PERIPHERAL [None]
